FAERS Safety Report 14342911 (Version 1)
Quarter: 2018Q1

REPORT INFORMATION
  Report Type: Spontaneous
  Country: ES (occurrence: ES)
  Receive Date: 20180102
  Receipt Date: 20180102
  Transmission Date: 20180509
  Serious: Yes (Hospitalization, Other)
  Sender: FDA-Public Use
  Company Number: ES-GILEAD-2017-0312055

PATIENT
  Age: 74 Year
  Sex: Female

DRUGS (3)
  1. ZYDELIG [Suspect]
     Active Substance: IDELALISIB
     Indication: CHRONIC LYMPHOCYTIC LEUKAEMIA
  2. RITUXIMAB. [Concomitant]
     Active Substance: RITUXIMAB
     Indication: CHRONIC LYMPHOCYTIC LEUKAEMIA
     Dosage: UNK
     Dates: start: 20170920
  3. ZYDELIG [Suspect]
     Active Substance: IDELALISIB
     Indication: B-CELL LYMPHOMA
     Dosage: 100 MG, BID
     Route: 065
     Dates: start: 20170920, end: 20171118

REACTIONS (8)
  - Bone marrow toxicity [Recovered/Resolved]
  - Neutropenia [Not Recovered/Not Resolved]
  - Renal impairment [Recovered/Resolved]
  - Confusional state [Recovered/Resolved]
  - Cytomegalovirus infection [Recovered/Resolved]
  - Herpes simplex [Recovered/Resolved]
  - Pyrexia [Recovered/Resolved]
  - Oesophagitis [Recovered/Resolved]

NARRATIVE: CASE EVENT DATE: 20171117
